FAERS Safety Report 13459985 (Version 1)
Quarter: 2017Q2

REPORT INFORMATION
  Report Type: Spontaneous
  Country: US (occurrence: US)
  Receive Date: 20170420
  Receipt Date: 20170420
  Transmission Date: 20170830
  Serious: Yes (Other)
  Sender: FDA-Public Use
  Company Number: US-TEVA-683682USA

PATIENT
  Age: 54 Year
  Sex: Male
  Weight: 74.91 kg

DRUGS (1)
  1. ZOLPIDEM [Suspect]
     Active Substance: ZOLPIDEM\ZOLPIDEM TARTRATE
     Indication: SLEEP DISORDER

REACTIONS (7)
  - Aggression [Recovered/Resolved]
  - Loss of consciousness [Recovered/Resolved]
  - Laceration [Unknown]
  - Contusion [Unknown]
  - Pain [Unknown]
  - Eye injury [Unknown]
  - Fall [Unknown]

NARRATIVE: CASE EVENT DATE: 20160803
